FAERS Safety Report 25114750 (Version 2)
Quarter: 2025Q2

REPORT INFORMATION
  Report Type: Spontaneous
  Country: BE (occurrence: BE)
  Receive Date: 20250324
  Receipt Date: 20250514
  Transmission Date: 20250717
  Serious: Yes (Death, Hospitalization)
  Sender: Alora Pharma
  Company Number: BE-OSMOTICA PHARMACEUTICALS-2025ALO02103

PATIENT
  Age: 35 Year
  Sex: Female

DRUGS (1)
  1. VENLAFAXINE HYDROCHLORIDE [Suspect]
     Active Substance: VENLAFAXINE HYDROCHLORIDE
     Route: 048

REACTIONS (14)
  - Cardiac arrest [Fatal]
  - Ejection fraction decreased [Not Recovered/Not Resolved]
  - Cardiac failure acute [Not Recovered/Not Resolved]
  - Generalised tonic-clonic seizure [Not Recovered/Not Resolved]
  - Overdose [Recovered/Resolved]
  - Hallucination, visual [Not Recovered/Not Resolved]
  - Tremor [Not Recovered/Not Resolved]
  - Nystagmus [Not Recovered/Not Resolved]
  - Sinus tachycardia [Not Recovered/Not Resolved]
  - Electrocardiogram QT prolonged [Not Recovered/Not Resolved]
  - Atrial fibrillation [Not Recovered/Not Resolved]
  - Hypotension [Not Recovered/Not Resolved]
  - Anuria [Not Recovered/Not Resolved]
  - Hypoglycaemia [Not Recovered/Not Resolved]
